FAERS Safety Report 7326569-5 (Version None)
Quarter: 2011Q1

REPORT INFORMATION
  Report Type: 
  Country: None (occurrence: None)
  Receive Date: 20110302
  Receipt Date: 20110225
  Transmission Date: 20110831
  Serious: Yes (Hospitalization, Disabling, Other)
  Sender: FDA-Public Use
  Company Number: US-MERCK-1009USA00853

PATIENT
  Age: 77 Year
  Sex: Female

DRUGS (2)
  1. FOSAMAX [Suspect]
     Indication: OSTEOPOROSIS
     Route: 048
     Dates: start: 20050420, end: 20071128
  2. LIPITOR [Concomitant]
     Indication: BLOOD CHOLESTEROL
     Route: 048
     Dates: start: 19930101

REACTIONS (32)
  - COUGH [None]
  - BONE DENSITY DECREASED [None]
  - ADVERSE DRUG REACTION [None]
  - EXOSTOSIS [None]
  - ABSCESS [None]
  - RENAL TRANSPLANT [None]
  - BONE DISORDER [None]
  - DENTAL CARIES [None]
  - GINGIVAL HYPERTROPHY [None]
  - ORAL TORUS [None]
  - OSTEOPOROSIS [None]
  - DENTAL PLAQUE [None]
  - CARDIAC DISORDER [None]
  - HOSPITALISATION [None]
  - GINGIVAL BLEEDING [None]
  - GINGIVITIS [None]
  - IMPAIRED HEALING [None]
  - FUNGAL INFECTION [None]
  - HAEMORRHAGE [None]
  - TOOTH LOSS [None]
  - OSTEONECROSIS OF JAW [None]
  - BLOOD CREATININE INCREASED [None]
  - PERIODONTAL DISEASE [None]
  - OSTEONECROSIS [None]
  - RHEUMATOID ARTHRITIS [None]
  - GINGIVAL DISORDER [None]
  - RENAL IMPAIRMENT [None]
  - TONGUE ULCERATION [None]
  - TOOTH EXTRACTION [None]
  - ORAL INFECTION [None]
  - STOMATITIS [None]
  - NECROSIS [None]
